FAERS Safety Report 7661462-X (Version None)
Quarter: 2011Q3

REPORT INFORMATION
  Report Type: 
  Country: None (occurrence: None)
  Receive Date: 20110805
  Receipt Date: 20101018
  Transmission Date: 20111222
  Serious: No
  Sender: FDA-Public Use
  Company Number: US-ABBOTT-10P-163-0679218-00

PATIENT
  Sex: Male
  Weight: 99.426 kg

DRUGS (17)
  1. VALTREX [Suspect]
     Indication: PROPHYLAXIS
     Route: 048
     Dates: start: 20101009, end: 20101016
  2. VOLTAREN [Concomitant]
     Indication: BACK PAIN
     Route: 061
  3. LOVASA [Concomitant]
     Indication: SUPPLEMENTATION THERAPY
     Dosage: UNKNOWN STRENGTH
     Route: 048
  4. SIMVASTATIN [Concomitant]
     Indication: BLOOD CHOLESTEROL
     Route: 048
  5. LIDODERM [Concomitant]
     Indication: BACK PAIN
     Route: 061
  6. LISINOPRIL [Concomitant]
     Indication: HYPERTENSION
     Route: 048
  7. VITAMIN D [Concomitant]
     Indication: VITAMIN SUPPLEMENTATION
     Route: 060
  8. VALTREX [Suspect]
     Indication: HERPES SIMPLEX
  9. FOLGARD [Concomitant]
     Indication: SUPPLEMENTATION THERAPY
     Route: 048
  10. PATANOL [Concomitant]
     Indication: SEASONAL ALLERGY
     Route: 047
  11. NASONEX [Concomitant]
     Indication: SEASONAL ALLERGY
     Route: 045
  12. NIASPAN [Suspect]
     Indication: HIGH DENSITY LIPOPROTEIN DECREASED
     Route: 048
     Dates: start: 20101011, end: 20101016
  13. ASPIRIN [Concomitant]
     Indication: CARDIAC DISORDER
     Dosage: TAKES IN AM
     Route: 048
  14. ZYRTEC [Concomitant]
     Indication: SEASONAL ALLERGY
     Route: 048
  15. AMLODIPINE [Concomitant]
     Indication: HYPERTENSION
     Route: 048
  16. COQ10 [Concomitant]
     Indication: SUPPLEMENTATION THERAPY
     Route: 048
  17. MULTI-VITAMIN [Concomitant]
     Indication: VITAMIN SUPPLEMENTATION
     Route: 048

REACTIONS (3)
  - FATIGUE [None]
  - INFLUENZA LIKE ILLNESS [None]
  - DYSGEUSIA [None]
